FAERS Safety Report 19826766 (Version 3)
Quarter: 2021Q3

REPORT INFORMATION
  Report Type: Spontaneous
  Country: CA (occurrence: CA)
  Receive Date: 20210914
  Receipt Date: 20210924
  Transmission Date: 20211014
  Serious: Yes (Life-Threatening, Hospitalization, Other)
  Sender: FDA-Public Use
  Company Number: CA-SA-2021SA299859

PATIENT
  Age: 4 Year
  Sex: Male
  Weight: 16 kg

DRUGS (36)
  1. AMLODIPINE [Concomitant]
     Active Substance: AMLODIPINE BESYLATE
  2. CETIRIZINE [Concomitant]
     Active Substance: CETIRIZINE HYDROCHLORIDE
  3. GABAPENTIN. [Concomitant]
     Active Substance: GABAPENTIN
  4. GANCICLOVIR. [Concomitant]
     Active Substance: GANCICLOVIR
  5. URSODEOXYCHOLIC ACID [Concomitant]
     Active Substance: URSODIOL
  6. CALCIUM+VITAMIN D3 [Concomitant]
     Active Substance: CALCIUM\CHOLECALCIFEROL
  7. PIPERACILLIN AND TAZOBACTAM [Concomitant]
     Active Substance: PIPERACILLIN SODIUM\TAZOBACTAM SODIUM
  8. ACICLOVIR [Concomitant]
     Active Substance: ACYCLOVIR
  9. CYCLOSPORINE. [Concomitant]
     Active Substance: CYCLOSPORINE
  10. DIMENHYDRINATE. [Concomitant]
     Active Substance: DIMENHYDRINATE
  11. DOCUSATE SODIUM. [Concomitant]
     Active Substance: DOCUSATE SODIUM
  12. FAMOTIDINE. [Concomitant]
     Active Substance: FAMOTIDINE
  13. LEVETIRACETAM. [Concomitant]
     Active Substance: LEVETIRACETAM
     Route: 065
  14. MYCOPHENOLATE MOFETIL. [Concomitant]
     Active Substance: MYCOPHENOLATE MOFETIL
  15. POLYETHYLENE GLYCOL [MACROGOL] [Concomitant]
     Active Substance: POLYETHYLENE GLYCOLS
  16. ALEMTUZUMAB [Suspect]
     Active Substance: ALEMTUZUMAB
     Indication: PROPHYLAXIS AGAINST TRANSPLANT REJECTION
     Dosage: 2.9 MG
     Route: 041
  17. FOSCARNET SODIUM. [Concomitant]
     Active Substance: FOSCARNET SODIUM
     Route: 042
  18. FUROSEMIDE. [Concomitant]
     Active Substance: FUROSEMIDE
  19. ACETAMINOPHEN. [Concomitant]
     Active Substance: ACETAMINOPHEN
  20. HYDROXYZINE [Concomitant]
     Active Substance: HYDROXYZINE HYDROCHLORIDE
  21. CHOLECALCIFEROL [Concomitant]
     Active Substance: CHOLECALCIFEROL
  22. AMOXICILLIN. [Concomitant]
     Active Substance: AMOXICILLIN
  23. CLONIDINE. [Concomitant]
     Active Substance: CLONIDINE
  24. DIPHENHYDRAMINE. [Concomitant]
     Active Substance: DIPHENHYDRAMINE
  25. VANCOMYCIN [Concomitant]
     Active Substance: VANCOMYCIN
  26. FLUDARABINE PHOSPHATE. [Suspect]
     Active Substance: FLUDARABINE PHOSPHATE
     Dosage: 20 MG
     Route: 041
  27. BUSULFAN. [Suspect]
     Active Substance: BUSULFAN
     Indication: PROPHYLAXIS AGAINST TRANSPLANT REJECTION
     Dosage: 100 MG
     Route: 041
  28. CEFTAZIDIME. [Concomitant]
     Active Substance: CEFTAZIDIME
  29. DEXAMETHASONE. [Concomitant]
     Active Substance: DEXAMETHASONE
  30. FLUCONAZOLE. [Concomitant]
     Active Substance: FLUCONAZOLE
  31. HYDROCORTISONE. [Concomitant]
     Active Substance: HYDROCORTISONE
  32. LORAZEPAM. [Concomitant]
     Active Substance: LORAZEPAM
  33. AMPHOTERICIN B. [Concomitant]
     Active Substance: AMPHOTERICIN B
  34. METHYLPREDNISOLONE. [Concomitant]
     Active Substance: METHYLPREDNISOLONE
  35. ONDANSETRON [Concomitant]
     Active Substance: ONDANSETRON
  36. MAGNESIUM [Concomitant]
     Active Substance: MAGNESIUM

REACTIONS (2)
  - Stomatitis [Recovered/Resolved]
  - Aplastic anaemia [Recovered/Resolved]
